FAERS Safety Report 5856614-5 (Version None)
Quarter: 2008Q3

REPORT INFORMATION
  Report Type: 
  Country: None (occurrence: None)
  Receive Date: 20080825
  Receipt Date: 20070726
  Transmission Date: 20090109
  Serious: No
  Sender: FDA-Public Use
  Company Number: US-ASTRAZENECA-2004UW09184

PATIENT
  Age: 68 Year
  Sex: Female
  Weight: 61.8 kg

DRUGS (16)
  1. IRESSA [Suspect]
     Indication: NON-SMALL CELL LUNG CANCER
     Route: 048
     Dates: start: 20020101, end: 20040523
  2. IRESSA [Suspect]
     Route: 048
     Dates: start: 20070701
  3. PREVACID [Concomitant]
  4. GLIPIZIDE [Concomitant]
  5. ERGOLOID [Concomitant]
  6. TINCTURE OF OPIUM [Concomitant]
     Dosage: 10 %
  7. APP [Concomitant]
     Dosage: ONE TABLET 4-6 HOURS
  8. ZYRTEC [Concomitant]
  9. EYE DROPS [Concomitant]
  10. LEVOBUNOLOL HCL [Concomitant]
  11. CHOLESTYRAMINE [Concomitant]
  12. ATACAND [Concomitant]
     Dosage: 1/2 TABLET DAILY
  13. FOLIC ACID [Concomitant]
  14. CYCLOBENZAPRINE HCL [Concomitant]
     Indication: BONE PAIN
  15. SYNTHROID [Concomitant]
  16. HYDROMET [Concomitant]
     Indication: COUGH

REACTIONS (3)
  - NAUSEA [None]
  - PAIN [None]
  - VOMITING [None]
